FAERS Safety Report 21879962 (Version 2)
Quarter: 2023Q2

REPORT INFORMATION
  Report Type: Report from Study
  Country: US (occurrence: US)
  Receive Date: 20230118
  Receipt Date: 20230418
  Transmission Date: 20230722
  Serious: No
  Sender: FDA-Public Use
  Company Number: US-ABBVIE-4240591

PATIENT
  Age: 41 Year
  Sex: Female

DRUGS (1)
  1. RINVOQ [Suspect]
     Active Substance: UPADACITINIB
     Indication: Rheumatoid arthritis
     Dosage: FORM STRENGTH: 15 MG?ER
     Route: 048
     Dates: start: 20220713

REACTIONS (12)
  - SARS-CoV-2 test positive [Unknown]
  - Weight bearing difficulty [Unknown]
  - Gait disturbance [Unknown]
  - Burning sensation [Unknown]
  - Pain [Recovered/Resolved]
  - Erythema [Recovered/Resolved]
  - Diverticulitis [Unknown]
  - Pain [Not Recovered/Not Resolved]
  - Impaired gastric emptying [Unknown]
  - Pain [Unknown]
  - Rheumatoid arthritis [Unknown]
  - Groin pain [Unknown]

NARRATIVE: CASE EVENT DATE: 20221125
